FAERS Safety Report 8872038 (Version 1)
Quarter: 2012Q4

REPORT INFORMATION
  Report Type: 
  Country: US (occurrence: US)
  Receive Date: 20121023
  Receipt Date: 20121023
  Transmission Date: 20130627
  Serious: No
  Sender: FDA-Public Use
  Company Number: US-ASTELLAS-2012US005967

PATIENT
  Age: 49 Year
  Sex: Female

DRUGS (3)
  1. PROGRAF [Suspect]
     Indication: PANCREAS TRANSPLANT
     Dosage: 4 mg, bid
     Route: 048
     Dates: start: 201201, end: 2012
  2. PROGRAF [Suspect]
     Dosage: 5 mg, bid
     Route: 048
     Dates: start: 2012, end: 2012
  3. PROGRAF [Suspect]
     Dosage: 4 mg, bid
     Route: 048
     Dates: start: 2012

REACTIONS (4)
  - Off label use [Unknown]
  - Immunosuppressant drug level decreased [Unknown]
  - Asthenia [Unknown]
  - Dizziness [Unknown]
